FAERS Safety Report 9403782 (Version 1)
Quarter: 2013Q3

REPORT INFORMATION
  Report Type: Spontaneous
  Country: US (occurrence: None)
  Receive Date: 20130716
  Receipt Date: 20130716
  Transmission Date: 20140515
  Serious: Yes (Death, Other)
  Sender: FDA-Public Use
  Company Number: None

PATIENT
  Age: 28 Year
  Sex: 0

DRUGS (2)
  1. FLUVOXAMINE [Suspect]
     Indication: DEPRESSION
     Dosage: 1 OR 1.5 PILLS MORNING AND BEDTIME MOUTH
     Route: 048
  2. RESPIRIDONE [Concomitant]

REACTIONS (2)
  - Completed suicide [None]
  - Asphyxia [None]
